FAERS Safety Report 8596370-3 (Version None)
Quarter: 2012Q3

REPORT INFORMATION
  Report Type: 
  Country: None (occurrence: None)
  Receive Date: 20120807
  Receipt Date: 20120807
  Transmission Date: 20120928
  Serious: Yes (Other)
  Sender: FDA-Public Use
  Company Number: None

PATIENT
  Sex: Female
  Weight: 57.6068 kg

DRUGS (1)
  1. PROLIA PROLIA. DENOSUMAB  INJECTION [Suspect]
     Indication: OSTEOPOROSIS
     Dosage: 2X ANN
     Dates: start: 20120301

REACTIONS (8)
  - PAIN [None]
  - TOOTH DISORDER [None]
  - BONE DISORDER [None]
  - TENDON DISORDER [None]
  - MUSCLE DISORDER [None]
  - SCIATICA [None]
  - MUSCULOSKELETAL PAIN [None]
  - OEDEMA PERIPHERAL [None]
